FAERS Safety Report 9900107 (Version 2)
Quarter: 2014Q1

REPORT INFORMATION
  Report Type: Report from Study
  Country: DE (occurrence: DE)
  Receive Date: 20140214
  Receipt Date: 20140214
  Transmission Date: 20141002
  Serious: Yes (Hospitalization, Other)
  Sender: FDA-Public Use
  Company Number: DE-ABBVIE-13P-062-1156677-00

PATIENT
  Age: 39 Year
  Sex: Female
  Weight: 44 kg

DRUGS (3)
  1. HUMIRA [Suspect]
     Indication: COLITIS ULCERATIVE
     Route: 058
     Dates: start: 20130328, end: 20130820
  2. MOSALAZIN [Concomitant]
     Indication: PRODUCT USED FOR UNKNOWN INDICATION
  3. ENTOCORT [Concomitant]
     Indication: PRODUCT USED FOR UNKNOWN INDICATION

REACTIONS (5)
  - Rectal stenosis [Recovering/Resolving]
  - Dysplasia [Recovering/Resolving]
  - Neoplasm malignant [Not Recovered/Not Resolved]
  - Drug ineffective [Recovering/Resolving]
  - General physical health deterioration [Unknown]
